FAERS Safety Report 18603038 (Version 5)
Quarter: 2021Q3

REPORT INFORMATION
  Report Type: Spontaneous
  Country: DE (occurrence: DE)
  Receive Date: 20201210
  Receipt Date: 20210721
  Transmission Date: 20211014
  Serious: Yes (Life-Threatening, Hospitalization, Other)
  Sender: FDA-Public Use
  Company Number: DE-PURDUE-USA-2020-0183356

PATIENT
  Age: 14 Month
  Sex: Female
  Weight: 13 kg

DRUGS (1)
  1. NON?PMN HYDROMORPHONE HCL [Suspect]
     Active Substance: HYDROMORPHONE HYDROCHLORIDE
     Indication: PRODUCT USED FOR UNKNOWN INDICATION
     Dosage: UNK (TABLET)
     Route: 048

REACTIONS (14)
  - Accidental exposure to product by child [Recovered/Resolved]
  - Toxicity to various agents [Recovering/Resolving]
  - Tachycardia [Recovering/Resolving]
  - Irregular breathing [Recovered/Resolved]
  - Acute respiratory failure [Recovering/Resolving]
  - Cyanosis [Recovered/Resolved]
  - Dyspnoea [Recovered/Resolved]
  - Pulse abnormal [Recovered/Resolved]
  - Accidental poisoning [Recovered/Resolved]
  - Accidental overdose [Recovering/Resolving]
  - Respiratory acidosis [Recovered/Resolved]
  - Loss of consciousness [Recovered/Resolved]
  - Miosis [Recovered/Resolved]
  - Hypotension [Recovering/Resolving]
